FAERS Safety Report 5965833-9 (Version None)
Quarter: 2008Q4

REPORT INFORMATION
  Report Type: 
  Country: None (occurrence: None)
  Receive Date: 20081125
  Receipt Date: 20081120
  Transmission Date: 20090506
  Serious: Yes (Hospitalization, Disabling, Other)
  Sender: FDA-Public Use
  Company Number: NL-BIOGENIDEC-2008BI019437

PATIENT
  Age: 55 Year
  Sex: Female
  Weight: 115 kg

DRUGS (4)
  1. TYSABRI [Suspect]
     Indication: MULTIPLE SCLEROSIS
     Route: 042
     Dates: start: 20080418
  2. THYROXIN [Concomitant]
     Indication: MULTIPLE SCLEROSIS
     Route: 048
  3. ASPIRIN [Concomitant]
     Route: 048
  4. PERSANTINE [Concomitant]
     Route: 048

REACTIONS (1)
  - CEREBROVASCULAR ACCIDENT [None]
